FAERS Safety Report 12484037 (Version 2)
Quarter: 2016Q3

REPORT INFORMATION
  Report Type: Spontaneous
  Country: DE (occurrence: DE)
  Receive Date: 20160621
  Receipt Date: 20160708
  Transmission Date: 20161109
  Serious: Yes (Life-Threatening)
  Sender: FDA-Public Use
  Company Number: DE-FERRINGPH-2016FE02732

PATIENT

DRUGS (5)
  1. MENOGON HP [Suspect]
     Active Substance: MENOTROPINS
     Dosage: 225 IU, DAILY
     Route: 058
     Dates: start: 201507, end: 201507
  2. FOLIO FORTE [Concomitant]
     Active Substance: FOLIC ACID\VITAMINS
     Indication: NUTRITIONAL SUPPLEMENTATION
     Dosage: UNK
     Route: 048
     Dates: start: 2013
  3. PUREGON                            /01309301/ [Suspect]
     Active Substance: FOLLITROPIN
     Indication: INFERTILITY FEMALE
     Dosage: 225 IU, DAILY
     Route: 058
     Dates: start: 201307, end: 201307
  4. PUREGON                            /01309301/ [Suspect]
     Active Substance: FOLLITROPIN
     Dosage: 225 IU, DAILY
     Route: 058
     Dates: start: 201507, end: 201507
  5. MENOGON HP [Suspect]
     Active Substance: MENOTROPINS
     Indication: INFERTILITY FEMALE
     Dosage: 225 IU, DAILY
     Route: 058
     Dates: start: 201307, end: 201307

REACTIONS (2)
  - Melanocytic naevus [Recovered/Resolved]
  - Melanocytic naevus [Recovered/Resolved]

NARRATIVE: CASE EVENT DATE: 201402
